FAERS Safety Report 7111609-9 (Version None)
Quarter: 2010Q4

REPORT INFORMATION
  Report Type: 
  Country: None (occurrence: None)
  Receive Date: 20101118
  Receipt Date: 20100223
  Transmission Date: 20110411
  Serious: No
  Sender: FDA-Public Use
  Company Number: US-TEVA-225739USA

PATIENT
  Sex: Female

DRUGS (4)
  1. ALBUTEROL SULFATE AUTOHALER [Suspect]
     Indication: DYSPNOEA
     Route: 055
     Dates: start: 20080101
  2. GLIBENCLAMIDE [Concomitant]
  3. BLOOD PRESSURE MEDICATION [Concomitant]
  4. CHOLESTEROL MEDICATION [Concomitant]

REACTIONS (6)
  - CHEST PAIN [None]
  - DRUG INEFFECTIVE [None]
  - DYSPNOEA [None]
  - OROPHARYNGEAL PAIN [None]
  - SENSATION OF FOREIGN BODY [None]
  - THERAPEUTIC RESPONSE DECREASED [None]
